FAERS Safety Report 7809241-4 (Version None)
Quarter: 2011Q4

REPORT INFORMATION
  Report Type: 
  Country: None (occurrence: None)
  Receive Date: 20111006
  Receipt Date: 20110930
  Transmission Date: 20120403
  Serious: Yes (Hospitalization)
  Sender: FDA-Public Use
  Company Number: KAD201110-000022

PATIENT
  Age: 49 Year
  Sex: Female

DRUGS (7)
  1. FLUCONAZOLE [Suspect]
     Indication: CRYPTOCOCCOSIS
  2. MESALAMINE [Concomitant]
  3. EMPIRICAL ANTIBIOTIC THERAPY [Concomitant]
  4. INFLIXIMAB [Concomitant]
  5. PREDNISONE [Concomitant]
  6. AMPHOTERICIN B [Suspect]
     Indication: CRYPTOCOCCOSIS
  7. AZATHIOPRINE [Concomitant]

REACTIONS (3)
  - DISEASE RECURRENCE [None]
  - REFUSAL OF TREATMENT BY PATIENT [None]
  - COLITIS ULCERATIVE [None]
